FAERS Safety Report 12130489 (Version 1)
Quarter: 2016Q1

REPORT INFORMATION
  Report Type: Spontaneous
  Country: US (occurrence: None)
  Receive Date: 20160301
  Receipt Date: 20160301
  Transmission Date: 20160526
  Serious: Yes (Other)
  Sender: FDA-Public Use
  Company Number: US-MDT-ADR-2016-00259

PATIENT
  Age: 44 Year
  Sex: Male

DRUGS (1)
  1. LIORESAL [Suspect]
     Active Substance: BACLOFEN
     Indication: MUSCLE SPASTICITY
     Dosage: 850MCG/DAY

REACTIONS (7)
  - Muscle twitching [None]
  - Stress [None]
  - Pruritus [None]
  - Muscle spasticity [None]
  - Factitious disorder [None]
  - Drug withdrawal syndrome [None]
  - No therapeutic response [None]
